FAERS Safety Report 14759173 (Version 1)
Quarter: 2018Q2

REPORT INFORMATION
  Report Type: Spontaneous
  Country: FR (occurrence: FR)
  Receive Date: 20180413
  Receipt Date: 20180413
  Transmission Date: 20180711
  Serious: Yes (Death)
  Sender: FDA-Public Use
  Company Number: FR-SAOL THERAPEUTICS-2018SAO00482

PATIENT

DRUGS (1)
  1. BACLOFEN. [Suspect]
     Active Substance: BACLOFEN
     Route: 048

REACTIONS (3)
  - Brain injury [Fatal]
  - Poisoning deliberate [Fatal]
  - Seizure [Fatal]
